FAERS Safety Report 24657396 (Version 4)
Quarter: 2024Q4

REPORT INFORMATION
  Report Type: Spontaneous
  Country: FR (occurrence: FR)
  Receive Date: 20241125
  Receipt Date: 20241205
  Transmission Date: 20250115
  Serious: Yes (Life-Threatening, Other)
  Sender: ASTELLAS
  Company Number: None

PATIENT
  Age: 54 Year
  Sex: Male
  Weight: 70 kg

DRUGS (10)
  1. PROGRAF [Interacting]
     Active Substance: TACROLIMUS
     Indication: Liver transplant
     Route: 048
     Dates: start: 20241012, end: 20241104
  2. FLUCONAZOLE [Interacting]
     Active Substance: FLUCONAZOLE
     Indication: Opportunistic infection prophylaxis
     Route: 048
     Dates: start: 20241022, end: 20241104
  3. BACTRIM [Suspect]
     Active Substance: SULFAMETHOXAZOLE\TRIMETHOPRIM
     Indication: Opportunistic infection prophylaxis
     Dosage: 840 MILLIGRAM, EACH DAY
     Route: 048
     Dates: start: 20241025, end: 20241106
  4. CELLCEPT [Suspect]
     Active Substance: MYCOPHENOLATE MOFETIL
     Indication: Liver transplant
     Dosage: 3000 MILLIGRAM, EACH DAY
     Route: 048
     Dates: start: 20241012
  5. FIDAXOMICIN [Suspect]
     Active Substance: FIDAXOMICIN
     Indication: Clostridium difficile colitis
     Dosage: 200 MILLIGRAM, EACH DAY
     Route: 048
     Dates: start: 20241020, end: 20241031
  6. FIDAXOMICIN [Suspect]
     Active Substance: FIDAXOMICIN
     Indication: Clostridium difficile infection
     Dosage: 30/08/2024 : POSITIVE CLOSTRIDIUM DIFFICILE SEARCH. INTRODUCTIONFIDAXOMICIN 200MG CPR, 1 TABLET IN
     Route: 048
     Dates: start: 20240830, end: 20240908
  7. PREDNISONE [Concomitant]
     Active Substance: PREDNISONE
     Indication: Liver transplant
     Dosage: 20 MILLIGRAM, EACH DAY
     Route: 048
     Dates: start: 20241012
  8. LANSOPRAZOLE [Concomitant]
     Active Substance: LANSOPRAZOLE
     Indication: Product used for unknown indication
     Dosage: 15 MILLIGRAM, EACH DAY
     Route: 065
  9. LERCANIDIPINE [Concomitant]
     Active Substance: LERCANIDIPINE
     Indication: Product used for unknown indication
     Dosage: 10 MILLIGRAM, EACH DAY
     Route: 065
  10. PAROXETINE [Concomitant]
     Active Substance: PAROXETINE
     Indication: Product used for unknown indication
     Dosage: 20 MILLIGRAM, EACH DAY
     Route: 065

REACTIONS (3)
  - Acute kidney injury [Recovering/Resolving]
  - Hyperkalaemia [Recovering/Resolving]
  - Drug interaction [Unknown]

NARRATIVE: CASE EVENT DATE: 20241025
